FAERS Safety Report 9643120 (Version 1)
Quarter: 2013Q4

REPORT INFORMATION
  Report Type: Report from Study
  Country: US (occurrence: US)
  Receive Date: 20131024
  Receipt Date: 20131024
  Transmission Date: 20140711
  Serious: No
  Sender: FDA-Public Use
  Company Number: US-VERTEX PHARMACEUTICALS INC-2013-010577

PATIENT
  Sex: Male

DRUGS (3)
  1. VX-950 (TELAPREVIR) [Suspect]
     Indication: HEPATITIS C
     Dosage: 750 MG, TID
     Dates: start: 20130920, end: 201310
  2. RIBAVIRIN [Suspect]
     Indication: HEPATITIS C
     Dosage: 3 DF, BID
     Dates: start: 20130920, end: 201310
  3. PEGASYS [Suspect]
     Indication: HEPATITIS C
     Dosage: UNK
     Dates: start: 20130920, end: 201310

REACTIONS (3)
  - Decreased appetite [Unknown]
  - Rash [Unknown]
  - Vomiting [Unknown]
